FAERS Safety Report 18460629 (Version 2)
Quarter: 2020Q4

REPORT INFORMATION
  Report Type: Spontaneous
  Country: JP (occurrence: JP)
  Receive Date: 20201103
  Receipt Date: 20201118
  Transmission Date: 20210114
  Serious: Yes (Hospitalization)
  Sender: FDA-Public Use
  Company Number: JP-CELLTRION INC.-2020JP030496

PATIENT

DRUGS (3)
  1. INFLIXIMAB BS FOR I.V. INFUSION100 MG [NK] [Suspect]
     Active Substance: INFLIXIMAB
     Indication: RHEUMATOID ARTHRITIS
     Dosage: 220 MG, QD (EVERY ADMINISTRATION DAY)
     Route: 041
     Dates: start: 20200728, end: 20200908
  2. BARACLUDE [Concomitant]
     Active Substance: ENTECAVIR
     Dosage: UNK
     Dates: start: 20160921
  3. RHEUMATREX [Concomitant]
     Active Substance: METHOTREXATE SODIUM
     Dosage: UNK
     Dates: start: 20160921

REACTIONS (4)
  - Malaise [Unknown]
  - Overdose [Unknown]
  - Pyrexia [Unknown]
  - Interstitial lung disease [Recovering/Resolving]

NARRATIVE: CASE EVENT DATE: 20201021
